FAERS Safety Report 21159279 (Version 1)
Quarter: 2022Q3

REPORT INFORMATION
  Report Type: Spontaneous
  Country: IR (occurrence: None)
  Receive Date: 20220802
  Receipt Date: 20220802
  Transmission Date: 20221027
  Serious: Yes (Hospitalization, Other)
  Sender: FDA-Public Use
  Company Number: IR-Allegis Pharmaceuticals, LLC-APL202207-000043

PATIENT
  Age: 19 Year
  Sex: Female

DRUGS (1)
  1. NITROGLYCERIN [Suspect]
     Active Substance: NITROGLYCERIN
     Indication: Suicide attempt
     Dosage: 50 TABLETS OF 320 MG
     Dates: start: 2021

REACTIONS (6)
  - Suicide attempt [Unknown]
  - Toxicity to various agents [Recovered/Resolved]
  - Chest pain [Recovered/Resolved]
  - Metabolic acidosis [Recovered/Resolved]
  - Hypotension [Recovered/Resolved]
  - Palpitations [Recovered/Resolved]

NARRATIVE: CASE EVENT DATE: 20210101
